FAERS Safety Report 14783893 (Version 1)
Quarter: 2018Q2

REPORT INFORMATION
  Report Type: Report from Study
  Country: US (occurrence: US)
  Receive Date: 20180420
  Receipt Date: 20180420
  Transmission Date: 20180711
  Serious: Yes (Death)
  Sender: FDA-Public Use
  Company Number: US-PFIZER INC-2018146121

PATIENT
  Age: 80 Year
  Sex: Female

DRUGS (1)
  1. IBRANCE [Suspect]
     Active Substance: PALBOCICLIB
     Indication: BREAST CANCER
     Dosage: 125 MG, CYCLIC (ONCE DAILY, 21 DAYS ON, FOLLOWED BY 7 DAYS REST)
     Route: 048
     Dates: start: 20180323, end: 20180413

REACTIONS (1)
  - Death [Fatal]

NARRATIVE: CASE EVENT DATE: 20180413
